FAERS Safety Report 8367304-1 (Version None)
Quarter: 2012Q2

REPORT INFORMATION
  Report Type: 
  Country: None (occurrence: None)
  Receive Date: 20120517
  Receipt Date: 20120508
  Transmission Date: 20120825
  Serious: Yes (Other)
  Sender: FDA-Public Use
  Company Number: US-ASTRAZENECA-2008UW04828

PATIENT
  Age: 72 Year
  Sex: Female

DRUGS (7)
  1. NEXIUM [Suspect]
     Indication: OROPHARYNGEAL PAIN
     Route: 048
     Dates: start: 20060101
  2. THYROID [Concomitant]
  3. TRIAMETRINE [Concomitant]
  4. SIMVASTATIN [Concomitant]
  5. DIAZIDE [Concomitant]
  6. ASPIRIN [Concomitant]
  7. CARVEDILOL [Concomitant]

REACTIONS (4)
  - MYOCARDIAL INFARCTION [None]
  - VOCAL CORD THICKENING [None]
  - GASTROOESOPHAGEAL REFLUX DISEASE [None]
  - WEIGHT DECREASED [None]
